FAERS Safety Report 17960834 (Version 1)
Quarter: 2020Q2

REPORT INFORMATION
  Report Type: Spontaneous
  Country: US (occurrence: US)
  Receive Date: 20200629
  Receipt Date: 20200629
  Transmission Date: 20200714
  Serious: Yes (Hospitalization)
  Sender: FDA-Public Use
  Company Number: US-ROCHE-2498294

PATIENT
  Age: 55 Year
  Sex: Male
  Weight: 88.53 kg

DRUGS (11)
  1. XELODA [Suspect]
     Active Substance: CAPECITABINE
     Indication: COLON CANCER METASTATIC
     Dosage: 7 DAY COURSE EVERY 2 WEEKS ;ONGOING: YES
     Route: 048
     Dates: start: 20190929
  2. AVASTIN [Suspect]
     Active Substance: BEVACIZUMAB
     Indication: COLON CANCER METASTATIC
     Dosage: 7 DAY COURSE FOR 1 WEEK ON AND 1 WEEK OFF ;ONGOING: YES
     Route: 042
     Dates: start: 20190925
  3. GLUCOPHAGE [Concomitant]
     Active Substance: METFORMIN HYDROCHLORIDE
     Indication: DIABETES MELLITUS
     Dosage: YES
     Route: 048
  4. BABY ASPIRIN [Concomitant]
     Active Substance: ASPIRIN
     Indication: BLOOD TRIGLYCERIDES INCREASED
     Dosage: YES
     Route: 048
     Dates: start: 201705
  5. FENOFIBRATE. [Concomitant]
     Active Substance: FENOFIBRATE
     Indication: BLOOD TRIGLYCERIDES INCREASED
     Dosage: YES
     Route: 048
     Dates: start: 201706
  6. METOPROLOL. [Concomitant]
     Active Substance: METOPROLOL
     Indication: HYPERTROPHIC CARDIOMYOPATHY
  7. AVASTIN [Suspect]
     Active Substance: BEVACIZUMAB
     Dosage: NO
     Route: 042
     Dates: start: 201705, end: 201711
  8. FOLFOX [Concomitant]
     Active Substance: FLUOROURACIL\LEUCOVORIN CALCIUM\OXALIPLATIN
     Indication: COLON CANCER METASTATIC
     Dosage: NO
     Route: 065
     Dates: start: 201705, end: 201711
  9. FOLFOX [Concomitant]
     Active Substance: FLUOROURACIL\LEUCOVORIN CALCIUM\OXALIPLATIN
     Dosage: NO
     Route: 065
     Dates: start: 201612, end: 201703
  10. AVASTIN [Suspect]
     Active Substance: BEVACIZUMAB
     Dosage: NO
     Route: 042
     Dates: start: 20161214, end: 201703
  11. METOPROLOL. [Concomitant]
     Active Substance: METOPROLOL
     Indication: HYPERTENSION
     Dosage: YES
     Route: 048

REACTIONS (4)
  - Epistaxis [Recovering/Resolving]
  - Blood triglycerides increased [Recovering/Resolving]
  - Epistaxis [Not Recovered/Not Resolved]
  - Rhinorrhoea [Recovering/Resolving]

NARRATIVE: CASE EVENT DATE: 2017
